FAERS Safety Report 6606843-8 (Version None)
Quarter: 2010Q1

REPORT INFORMATION
  Report Type: 
  Country: None (occurrence: None)
  Receive Date: 20100226
  Receipt Date: 20090309
  Transmission Date: 20100710
  Serious: No
  Sender: FDA-Public Use
  Company Number: US-ALLERGAN-0901898US

PATIENT
  Age: 42 Year
  Sex: Female
  Weight: 52.608 kg

DRUGS (1)
  1. BOTOX COSMETIC [Suspect]
     Indication: SKIN WRINKLING
     Dosage: UNK, SINGLE
     Route: 030
     Dates: start: 20090201, end: 20090201

REACTIONS (3)
  - ABNORMAL SENSATION IN EYE [None]
  - EYELID PTOSIS [None]
  - SENSATION OF PRESSURE [None]
